FAERS Safety Report 7908314-5 (Version None)
Quarter: 2011Q4

REPORT INFORMATION
  Report Type: 
  Country: None (occurrence: None)
  Receive Date: 20111111
  Receipt Date: 20111104
  Transmission Date: 20120403
  Serious: No
  Sender: FDA-Public Use
  Company Number: US-BIOGENIDEC-2011BI042108

PATIENT
  Sex: Female

DRUGS (2)
  1. AVONEX [Suspect]
     Indication: MULTIPLE SCLEROSIS
     Route: 030
     Dates: start: 20100901
  2. AVONEX [Suspect]
     Route: 030
     Dates: start: 20100701, end: 20100826

REACTIONS (5)
  - MUSCULOSKELETAL PAIN [None]
  - HYPOAESTHESIA [None]
  - DEPRESSED MOOD [None]
  - INJECTION SITE HAEMATOMA [None]
  - INSOMNIA [None]
